FAERS Safety Report 5256797-4 (Version None)
Quarter: 2007Q1

REPORT INFORMATION
  Report Type: 
  Country: None (occurrence: None)
  Receive Date: 20070302
  Receipt Date: 20070221
  Transmission Date: 20070707
  Serious: Yes (Other)
  Sender: FDA-Public Use
  Company Number: 163-21880-07010089

PATIENT
  Age: 94 Year
  Sex: Female

DRUGS (8)
  1. REVLIMID [Suspect]
     Indication: MYELODYSPLASTIC SYNDROME
     Dosage: SEE IMAGE
     Route: 048
     Dates: start: 20061105, end: 20061101
  2. REVLIMID [Suspect]
     Indication: MYELODYSPLASTIC SYNDROME
     Dosage: SEE IMAGE
     Route: 048
     Dates: start: 20070107
  3. ATENOLOL [Concomitant]
  4. POTASSIUM (POTASSIUM) [Concomitant]
  5. PROTONIX [Concomitant]
  6. LASIX [Concomitant]
  7. ALTACE [Concomitant]
  8. CALTRATE + D (LEKOVIT CA) [Concomitant]

REACTIONS (5)
  - DERMATITIS EXFOLIATIVE [None]
  - NEUTROPHIL COUNT DECREASED [None]
  - PAIN [None]
  - PLATELET COUNT DECREASED [None]
  - RASH GENERALISED [None]
